FAERS Safety Report 5794771-X (Version None)
Quarter: 2008Q2

REPORT INFORMATION
  Report Type: 
  Country: None (occurrence: None)
  Receive Date: 20080627
  Receipt Date: 20080627
  Transmission Date: 20081010
  Serious: Yes (Hospitalization)
  Sender: FDA-Public Use
  Company Number: None

PATIENT
  Sex: Female
  Weight: 50.8 kg

DRUGS (2)
  1. CARBOPLATIN [Suspect]
     Dosage: 488 MG
     Dates: end: 20080610
  2. TAXOL [Suspect]
     Dosage: 260 MG
     Dates: end: 20080610

REACTIONS (2)
  - PNEUMOMEDIASTINUM [None]
  - SUBCUTANEOUS EMPHYSEMA [None]
